FAERS Safety Report 5352597-5 (Version None)
Quarter: 2007Q2

REPORT INFORMATION
  Report Type: 
  Country: None (occurrence: None)
  Receive Date: 20070611
  Receipt Date: 20070531
  Transmission Date: 20071010
  Serious: Yes (Hospitalization)
  Sender: FDA-Public Use
  Company Number: JP-ROCHE-493743

PATIENT
  Age: 28 Year
  Sex: Female
  Weight: 61 kg

DRUGS (1)
  1. TAMIFLU [Suspect]
     Route: 048
     Dates: start: 20070409, end: 20070409

REACTIONS (1)
  - ALTERED STATE OF CONSCIOUSNESS [None]
